FAERS Safety Report 24676017 (Version 1)
Quarter: 2024Q4

REPORT INFORMATION
  Report Type: Spontaneous
  Country: RS (occurrence: RS)
  Receive Date: 20241128
  Receipt Date: 20241128
  Transmission Date: 20250115
  Serious: Yes (Other)
  Sender: BAUSCH AND LOMB
  Company Number: RS-BAUSCH-BL-2024-017061

PATIENT
  Age: 55 Year
  Sex: Female
  Weight: 75 kg

DRUGS (6)
  1. METFORMIN [Suspect]
     Active Substance: METFORMIN HYDROCHLORIDE
     Indication: Product used for unknown indication
     Dosage: 1+0+1
     Route: 065
  2. FOSINOPRIL SODIUM\HYDROCHLOROTHIAZIDE [Suspect]
     Active Substance: FOSINOPRIL SODIUM\HYDROCHLOROTHIAZIDE
     Indication: Product used for unknown indication
     Dosage: 1X1
     Route: 065
  3. MONOPRIL [Suspect]
     Active Substance: FOSINOPRIL SODIUM
     Indication: Product used for unknown indication
     Dosage: 1X1
     Route: 065
  4. NEBIVOLOL [Suspect]
     Active Substance: NEBIVOLOL
     Indication: Product used for unknown indication
     Dosage: 5 1X1/2IN THE MORNING
     Route: 065
  5. ASPIRIN [Suspect]
     Active Substance: ASPIRIN
     Indication: Product used for unknown indication
     Dosage: 1X1
     Route: 065
  6. ROSUVASTATIN [Suspect]
     Active Substance: ROSUVASTATIN
     Indication: Product used for unknown indication
     Dosage: 1X1
     Route: 065

REACTIONS (4)
  - Nephrolithiasis [Unknown]
  - Hepatic steatosis [Unknown]
  - Cholelithiasis [Unknown]
  - Hyperlipidaemia [Unknown]
